FAERS Safety Report 23877717 (Version 1)
Quarter: 2024Q2

REPORT INFORMATION
  Report Type: Spontaneous
  Country: US (occurrence: US)
  Receive Date: 20240521
  Receipt Date: 20240521
  Transmission Date: 20240715
  Serious: No
  Sender: FDA-Public Use
  Company Number: US-CIPLA LTD.-2024US02470

PATIENT

DRUGS (1)
  1. ALBUTEROL [Suspect]
     Active Substance: ALBUTEROL
     Indication: Product used for unknown indication
     Dosage: UNK, PRN (AS NEEDED)
     Route: 065

REACTIONS (4)
  - Adverse event [Not Recovered/Not Resolved]
  - Device delivery system issue [Unknown]
  - Product dose omission issue [Unknown]
  - Product tampering [Unknown]
